FAERS Safety Report 7810969-0 (Version None)
Quarter: 2011Q4

REPORT INFORMATION
  Report Type: 
  Country: None (occurrence: None)
  Receive Date: 20111012
  Receipt Date: 20111012
  Transmission Date: 20120403
  Serious: Yes (Hospitalization)
  Sender: FDA-Public Use
  Company Number: None

PATIENT
  Age: 70 Year
  Sex: Female
  Weight: 61.3 kg

DRUGS (3)
  1. LAPATINIB [Suspect]
     Indication: TRACHEAL CANCER
     Dosage: 1000 MG QD (DAILY) PO
     Route: 048
     Dates: start: 20110817, end: 20110829
  2. CETUXIMAB [Suspect]
     Indication: TRACHEAL CANCER
     Dosage: 400 MG/M2, THEN 250 MG/M2 Q WEEKLY IV
     Route: 042
     Dates: start: 20110824
  3. CETUXIMAB [Suspect]
     Indication: TRACHEAL CANCER
     Dosage: 400 MG/M2, THEN 250 MG/M2 Q WEEKLY IV
     Route: 042
     Dates: start: 20110817

REACTIONS (4)
  - COUGH [None]
  - STRIDOR [None]
  - HAEMOPTYSIS [None]
  - WHEEZING [None]
